FAERS Safety Report 12413085 (Version 3)
Quarter: 2016Q2

REPORT INFORMATION
  Report Type: Spontaneous
  Country: GB (occurrence: GB)
  Receive Date: 20160527
  Receipt Date: 20160622
  Transmission Date: 20160815
  Serious: Yes (Life-Threatening, Hospitalization, Other)
  Sender: FDA-Public Use
  Company Number: GB-SA-2016SA100866

PATIENT
  Age: 67 Year
  Sex: Female
  Weight: 80 kg

DRUGS (16)
  1. CLEXANE [Suspect]
     Active Substance: ENOXAPARIN SODIUM
     Indication: PERIPHERAL EMBOLISM
     Route: 065
     Dates: start: 20160317, end: 20160417
  2. PERJETA [Concomitant]
     Active Substance: PERTUZUMAB
     Route: 065
  3. OMEPRAZOLE. [Concomitant]
     Active Substance: OMEPRAZOLE
     Route: 065
  4. ZOMORPH [Concomitant]
     Active Substance: MORPHINE SULFATE
     Route: 065
  5. CLEXANE [Suspect]
     Active Substance: ENOXAPARIN SODIUM
     Indication: PERIPHERAL EMBOLISM
     Route: 065
     Dates: start: 20160317, end: 20160417
  6. LETROZOLE. [Concomitant]
     Active Substance: LETROZOLE
     Route: 065
  7. CLEXANE [Suspect]
     Active Substance: ENOXAPARIN SODIUM
     Indication: PERIPHERAL EMBOLISM
     Route: 065
     Dates: start: 20160317, end: 20160417
  8. CLEXANE [Suspect]
     Active Substance: ENOXAPARIN SODIUM
     Indication: PERIPHERAL EMBOLISM
     Route: 065
     Dates: start: 20160317, end: 20160417
  9. PERTUZUMAB [Concomitant]
     Active Substance: PERTUZUMAB
     Indication: BREAST CANCER STAGE IV
     Route: 065
  10. DENOSUMAB [Concomitant]
     Active Substance: DENOSUMAB
     Indication: BONE DISORDER
     Dosage: EVERY 6 WEEKS
     Route: 065
  11. DIURETICS [Concomitant]
     Active Substance: UNSPECIFIED INGREDIENT
     Route: 065
  12. HERCEPTIN [Concomitant]
     Active Substance: TRASTUZUMAB
     Indication: BREAST CANCER STAGE IV
     Route: 065
  13. CLEXANE [Suspect]
     Active Substance: ENOXAPARIN SODIUM
     Indication: PERIPHERAL EMBOLISM
     Route: 065
     Dates: start: 20160317, end: 20160417
  14. ADCAL-D3 [Concomitant]
     Active Substance: CALCIUM CARBONATE\CHOLECALCIFEROL
     Route: 065
  15. DOCETAXEL. [Concomitant]
     Active Substance: DOCETAXEL
     Indication: BREAST CANCER STAGE IV
     Route: 065
     Dates: end: 20160210
  16. CIPROFLOXACIN. [Suspect]
     Active Substance: CIPROFLOXACIN
     Indication: ANTIBIOTIC THERAPY
     Route: 065

REACTIONS (10)
  - Blister [Recovering/Resolving]
  - Pain [Not Recovered/Not Resolved]
  - Rash erythematous [Recovering/Resolving]
  - Skin haemorrhage [Recovering/Resolving]
  - Dermatitis [Recovering/Resolving]
  - Skin erosion [Recovering/Resolving]
  - Protein deficiency [Unknown]
  - Scab [Recovering/Resolving]
  - Burning sensation [Recovering/Resolving]
  - Erythema multiforme [Recovering/Resolving]

NARRATIVE: CASE EVENT DATE: 20160406
